FAERS Safety Report 7649751 (Version 6)
Quarter: 2013Q1

REPORT INFORMATION
  Report Type: Report from Study
  Country: DE (occurrence: DE)
  Receive Date: 20101029
  Receipt Date: 20130128
  Transmission Date: 20140127
  Serious: Yes (Hospitalization)
  Sender: FDA-Public Use
  Company Number: DE-ROCHE-737061

PATIENT
  Age: 75 Year
  Sex: Female
  Weight: 57 kg

DRUGS (14)
  1. TOCILIZUMAB [Suspect]
     Indication: RHEUMATOID ARTHRITIS
     Route: 042
  2. LEFLUNOMIDE [Concomitant]
     Indication: RHEUMATOID ARTHRITIS
     Route: 048
  3. PREDNISOLON [Concomitant]
     Indication: RHEUMATOID ARTHRITIS
  4. FOSAVANCE [Concomitant]
     Dosage: 1 DOSE FORM: 70 MG ALENDRONIC ACID PLUS 70 UG COLECALCIFEROL
     Route: 065
  5. DICLOFENAC [Concomitant]
  6. NOVALGIN [Concomitant]
     Route: 065
  7. PANTOPRAZOL [Concomitant]
     Route: 065
  8. ENALAPRIL [Concomitant]
  9. SIFROL [Concomitant]
     Route: 065
  10. PREGABALIN [Concomitant]
     Route: 065
  11. FERROSANOL DUODENAL [Concomitant]
     Route: 065
  12. CORTICOSTEROIDS (UNK INGREDIENTS) [Concomitant]
     Indication: RHEUMATOID ARTHRITIS
  13. RESTEX [Concomitant]
  14. TORASEMIDE [Concomitant]

REACTIONS (3)
  - Rheumatoid nodule [Recovered/Resolved]
  - Rheumatoid nodule [Recovered/Resolved]
  - Gangrene [Recovered/Resolved with Sequelae]
